FAERS Safety Report 15918274 (Version 1)
Quarter: 2019Q1

REPORT INFORMATION
  Report Type: Report from Study
  Country: CA (occurrence: CA)
  Receive Date: 20190205
  Receipt Date: 20190205
  Transmission Date: 20190417
  Serious: Yes (Hospitalization)
  Sender: FDA-Public Use
  Company Number: CA-HLSUS-2018-CA-001548

PATIENT
  Age: 53 Year
  Sex: Female
  Weight: 56 kg

DRUGS (4)
  1. CLOZARIL [Suspect]
     Active Substance: CLOZAPINE
     Indication: SCHIZOPHRENIA
     Dosage: 100 MG IN THE MORNING AND 600 MG AT BEDTIME
     Route: 048
     Dates: start: 20111009
  2. FLORINEF ACETATE [Concomitant]
     Active Substance: FLUDROCORTISONE ACETATE
     Indication: HYPOTENSION
     Dosage: 0.3 MG DAILY
     Route: 048
  3. EFFEXOR XR [Concomitant]
     Active Substance: VENLAFAXINE HYDROCHLORIDE
     Indication: DEPRESSION
     Dosage: 225 MG DAILY
     Route: 048
  4. CLONAZEPAM. [Concomitant]
     Active Substance: CLONAZEPAM
     Indication: ANXIETY
     Dosage: 0.5 MG BID
     Route: 048

REACTIONS (7)
  - Pancreatitis acute [Recovered/Resolved]
  - Lipase increased [Unknown]
  - Neutrophilia [Unknown]
  - Cholelithiasis [Unknown]
  - Breast cancer [Unknown]
  - Pneumonia [Recovered/Resolved]
  - Leukocytosis [Unknown]

NARRATIVE: CASE EVENT DATE: 201810
